FAERS Safety Report 8935107 (Version 1)
Quarter: 2012Q4

REPORT INFORMATION
  Report Type: 
  Country: GB (occurrence: GB)
  Receive Date: 20121129
  Receipt Date: 20121129
  Transmission Date: 20130627
  Serious: Yes (Other)
  Sender: FDA-Public Use
  Company Number: GB-WATSON-2012-20635

PATIENT
  Sex: Male

DRUGS (1)
  1. RAMIPRIL (UNKNOWN) [Suspect]
     Indication: BLOOD PRESSURE
     Dosage: 10 mg, bid
     Route: 065

REACTIONS (3)
  - Hypertension [Recovering/Resolving]
  - Drug ineffective [Unknown]
  - Drug tolerance [Unknown]
